FAERS Safety Report 9082918 (Version 1)
Quarter: 2013Q1

REPORT INFORMATION
  Report Type: Report from Study
  Country: US (occurrence: US)
  Receive Date: 20130131
  Receipt Date: 20130131
  Transmission Date: 20140127
  Serious: No
  Sender: FDA-Public Use
  Company Number: US-ABBOTT-12P-163-0986668-00

PATIENT
  Age: 40 None
  Sex: Male

DRUGS (2)
  1. HUMIRA [Suspect]
     Indication: PSORIATIC ARTHROPATHY
     Dosage: OFF FOR 3 MONTHS
     Route: 058
  2. HUMIRA [Suspect]
     Route: 058
     Dates: start: 20120920, end: 20120920

REACTIONS (4)
  - Pharyngeal oedema [Unknown]
  - Lip swelling [Unknown]
  - Swollen tongue [Unknown]
  - Hypersensitivity [Unknown]
